FAERS Safety Report 7198354-9 (Version None)
Quarter: 2010Q4

REPORT INFORMATION
  Report Type: 
  Country: None (occurrence: None)
  Receive Date: 20101227
  Receipt Date: 20101217
  Transmission Date: 20110411
  Serious: No
  Sender: FDA-Public Use
  Company Number: KR-JNJFOC-20101005072

PATIENT
  Age: 63 Year
  Sex: Female

DRUGS (2)
  1. DURAGESIC-100 [Suspect]
     Indication: PAIN MANAGEMENT
     Route: 062
  2. DURAGESIC-100 [Suspect]
     Route: 062

REACTIONS (4)
  - DREAMY STATE [None]
  - NAUSEA [None]
  - SOMNOLENCE [None]
  - TREATMENT NONCOMPLIANCE [None]
